FAERS Safety Report 20406322 (Version 1)
Quarter: 2022Q1

REPORT INFORMATION
  Report Type: Spontaneous
  Country: US (occurrence: US)
  Receive Date: 20220131
  Receipt Date: 20220131
  Transmission Date: 20220424
  Serious: Yes (Other)
  Sender: FDA-Public Use
  Company Number: US-AMGEN-USASP2022013887

PATIENT
  Age: 16 Year
  Sex: Female

DRUGS (4)
  1. INFLIXIMAB [Suspect]
     Active Substance: INFLIXIMAB
     Indication: Crohn^s disease
     Dosage: UNK
     Route: 065
  2. UCERIS [Concomitant]
     Active Substance: BUDESONIDE
  3. VANCOMYCIN [Concomitant]
     Active Substance: VANCOMYCIN
     Route: 048
  4. TOFACITINIB [Concomitant]
     Active Substance: TOFACITINIB
     Indication: Colitis

REACTIONS (2)
  - Crohn^s disease [Recovering/Resolving]
  - Therapy partial responder [Unknown]
